FAERS Safety Report 7798248-1 (Version None)
Quarter: 2011Q4

REPORT INFORMATION
  Report Type: 
  Country: None (occurrence: None)
  Receive Date: 20111005
  Receipt Date: 20110924
  Transmission Date: 20120403
  Serious: Yes (Hospitalization, Other)
  Sender: FDA-Public Use
  Company Number: JP-JNJFOC-20110800455

PATIENT
  Sex: Female
  Weight: 53 kg

DRUGS (7)
  1. FOLIC ACID [Concomitant]
     Indication: PROPHYLAXIS
     Route: 048
     Dates: start: 20090703
  2. DIPYRIDAMOLE [Concomitant]
     Indication: PROPHYLAXIS
     Route: 048
     Dates: start: 20100730
  3. LOXOPROFEN [Concomitant]
     Indication: RHEUMATOID ARTHRITIS
     Route: 048
     Dates: start: 20101112
  4. METHOTREXATE [Concomitant]
     Indication: RHEUMATOID ARTHRITIS
     Route: 048
     Dates: start: 20100122
  5. GOLIMUMAB [Suspect]
     Indication: RHEUMATOID ARTHRITIS
     Route: 058
     Dates: start: 20090114
  6. GOLIMUMAB [Suspect]
     Route: 058
     Dates: start: 20110406
  7. KELNAC [Concomitant]
     Indication: PROPHYLAXIS
     Route: 048
     Dates: start: 20101112

REACTIONS (1)
  - BREAST CANCER [None]
